FAERS Safety Report 7953789-9 (Version None)
Quarter: 2011Q4

REPORT INFORMATION
  Report Type: 
  Country: None (occurrence: None)
  Receive Date: 20111202
  Receipt Date: 20111124
  Transmission Date: 20120403
  Serious: Yes (Hospitalization, Disabling)
  Sender: FDA-Public Use
  Company Number: DE-B.I. PHARMACEUTICALS,INC./RIDGEFIELD-2011-DE-06558DE

PATIENT
  Age: 52 Year
  Sex: Male
  Weight: 95 kg

DRUGS (9)
  1. MST 10 RET [Concomitant]
     Dosage: 20 MG
  2. ALLOPURINOL [Concomitant]
     Dosage: 20 MG
  3. PRADAXA [Suspect]
     Dosage: 330 MG
     Route: 048
     Dates: start: 20110926, end: 20110930
  4. BISOPROLOL FUMARATE [Concomitant]
     Dosage: 5 MG
  5. TORSEMIDE [Concomitant]
     Dosage: 20 MG
  6. AMITRIPTYLINE HCL [Concomitant]
     Dosage: 100 MG
  7. LYRICA [Concomitant]
     Dosage: 150 MG
  8. BIFITERAL [Concomitant]
     Dosage: 30 ANZ
  9. OMEPRAZOLE [Concomitant]
     Dosage: 80 MG

REACTIONS (3)
  - SKIN REACTION [None]
  - BLISTER [None]
  - OEDEMA PERIPHERAL [None]
